FAERS Safety Report 6894193-4 (Version None)
Quarter: 2010Q3

REPORT INFORMATION
  Report Type: 
  Country: None (occurrence: None)
  Receive Date: 20100802
  Receipt Date: 20100719
  Transmission Date: 20110219
  Serious: Yes (Hospitalization)
  Sender: FDA-Public Use
  Company Number: PHHY2009DE52676

PATIENT
  Sex: Female

DRUGS (6)
  1. TASIGNA [Suspect]
     Indication: CHRONIC MYELOID LEUKAEMIA
     Dosage: 400 MG, DAILY
     Route: 048
     Dates: start: 20040101, end: 20091209
  2. ASPIRIN [Concomitant]
     Indication: PYREXIA
     Dosage: 100 MG DAILY
     Route: 048
  3. CLOPIDOGREL [Concomitant]
     Indication: CORONARY ARTERY DISEASE
     Dosage: 75 MG DAILY
     Route: 048
  4. ROSUVASTATIN [Concomitant]
     Dosage: 20 MG DAILY
     Route: 048
  5. CANDESARTAN [Concomitant]
     Indication: HYPERTENSION
     Dosage: 16 MG DAILY
     Route: 048
  6. METOPROLOL TARTRATE [Concomitant]
     Indication: HYPERTENSION
     Dosage: 47.5 MG DAILY
     Route: 048

REACTIONS (15)
  - ACUTE MYOCARDIAL INFARCTION [None]
  - ANGINA PECTORIS [None]
  - ANGINA UNSTABLE [None]
  - CAROTID ARTERY STENOSIS [None]
  - CEREBROVASCULAR ACCIDENT [None]
  - CORONARY ARTERY STENOSIS [None]
  - DYSARTHRIA [None]
  - MUSCULAR WEAKNESS [None]
  - MYOGLOBIN BLOOD INCREASED [None]
  - PAIN [None]
  - PARAESTHESIA [None]
  - PYREXIA [None]
  - TRANSIENT ISCHAEMIC ATTACK [None]
  - TROPONIN INCREASED [None]
  - VIITH NERVE PARALYSIS [None]
